FAERS Safety Report 10021366 (Version 3)
Quarter: 2014Q1

REPORT INFORMATION
  Report Type: Spontaneous
  Country: DE (occurrence: None)
  Receive Date: 20140313
  Receipt Date: 20140320
  Transmission Date: 20141002
  Serious: Yes (Other)
  Sender: FDA-Public Use
  Company Number: AUR-APL-2014-02700

PATIENT
  Sex: Female

DRUGS (7)
  1. CLOPIDOGREL (CLOPIDOGREL) [Suspect]
     Indication: THROMBOSIS PROPHYLAXIS
     Route: 048
     Dates: start: 20120813, end: 20121001
  2. RAMIPRIL (RAMIPRIL) [Suspect]
     Indication: HYPERTENSION
     Route: 048
     Dates: start: 20120813
  3. SIMVASTATIN (SIMVASTATIN) [Suspect]
     Indication: HYPERLIPIDAEMIA
     Route: 048
     Dates: start: 20120813, end: 20121001
  4. MOLSIDOMINE (MOLSIDOMINE) [Suspect]
     Indication: CORONARY ARTERY DISEASE
     Route: 048
     Dates: start: 20120813, end: 20121001
  5. HERZ ASS (ACETYLSALICYLIC ACID [Concomitant]
  6. OMEPRAZOLE (OMEPRAZOLE) [Concomitant]
  7. METOPROLOL (METOPROLOL) [Concomitant]

REACTIONS (2)
  - Abortion missed [None]
  - Maternal exposure during pregnancy [None]
